FAERS Safety Report 10090711 (Version 1)
Quarter: 2014Q2

REPORT INFORMATION
  Report Type: Spontaneous
  Country: JP (occurrence: JP)
  Receive Date: 20140421
  Receipt Date: 20140421
  Transmission Date: 20141212
  Serious: Yes (Other)
  Sender: FDA-Public Use
  Company Number: JP-US-EMD SERONO, INC.-7283491

PATIENT
  Age: 32 Year
  Sex: Female

DRUGS (6)
  1. CETROTIDE (CETRORELIX ACETATE FOR INJECTION) [Suspect]
     Indication: PREVENTION OF PREMATURE OVULATION
     Route: 058
     Dates: start: 20070827, end: 20070829
  2. FOLLISTIM [Concomitant]
     Indication: OVULATION INDUCTION
     Route: 030
     Dates: start: 20070821, end: 20070821
  3. FOLLISTIM [Concomitant]
     Route: 030
     Dates: start: 20070822, end: 20070827
  4. FOLLISTIM [Concomitant]
     Route: 030
     Dates: start: 20070828, end: 20070828
  5. GONATROPIN [Concomitant]
     Indication: OVULATION INDUCTION
     Route: 030
     Dates: start: 20070827, end: 20070828
  6. HCG [Concomitant]
     Indication: OVULATION INDUCTION
     Route: 030
     Dates: start: 20070829, end: 20070829

REACTIONS (1)
  - Abortion spontaneous [Unknown]
